FAERS Safety Report 21407688 (Version 2)
Quarter: 2022Q4

REPORT INFORMATION
  Report Type: Report from Study
  Country: IL (occurrence: IL)
  Receive Date: 20221004
  Receipt Date: 20221010
  Transmission Date: 20230112
  Serious: Yes (Death, Other)
  Sender: FDA-Public Use
  Company Number: IL-PFIZER INC-202201194304

PATIENT

DRUGS (3)
  1. METHOTREXATE SODIUM [Suspect]
     Active Substance: METHOTREXATE SODIUM
     Indication: Leukaemia
     Dosage: MTX 400 MG/0.1 ML, TWICE WEEKLY IN THE FIRST
     Route: 031
  2. METHOTREXATE SODIUM [Suspect]
     Active Substance: METHOTREXATE SODIUM
     Dosage: ONCE WEEKLY IN THE FOLLOWING TWO MONTHS
  3. METHOTREXATE SODIUM [Suspect]
     Active Substance: METHOTREXATE SODIUM
     Dosage: ONCE IN A MONTH THEREAFTER

REACTIONS (1)
  - Drug ineffective [Fatal]
